FAERS Safety Report 7076125-1 (Version None)
Quarter: 2010Q4

REPORT INFORMATION
  Report Type: 
  Country: None (occurrence: None)
  Receive Date: 20101021
  Receipt Date: 20101006
  Transmission Date: 20110411
  Serious: Yes (Hospitalization)
  Sender: FDA-Public Use
  Company Number: AUR-APL-2010-02486

PATIENT
  Age: 61 Year
  Sex: Female

DRUGS (5)
  1. METFORMIN [Suspect]
     Indication: TYPE 2 DIABETES MELLITUS
     Dosage: 1700MG-DAILY
  2. DICLOFENAC [Suspect]
     Indication: JOINT INJURY
     Dosage: 75MG-DAILY-ORAL
     Route: 048
  3. GLIMEPIRIDE [Concomitant]
  4. ENALAPRIL MALEATE [Concomitant]
  5. HYDROCHLOROTHIAZIDE [Concomitant]

REACTIONS (7)
  - ABDOMINAL DISCOMFORT [None]
  - DISORIENTATION [None]
  - HAEMODIALYSIS [None]
  - LACTIC ACIDOSIS [None]
  - METABOLIC ACIDOSIS [None]
  - OLIGURIA [None]
  - RENAL IMPAIRMENT [None]
